FAERS Safety Report 24690770 (Version 1)
Quarter: 2024Q4

REPORT INFORMATION
  Report Type: Other
  Country: US (occurrence: US)
  Receive Date: 20241203
  Receipt Date: 20241203
  Transmission Date: 20250115
  Serious: Yes (Hospitalization, Other)
  Sender: COREPHARMA LLC
  Company Number: US-CorePharma LLC-2166387

PATIENT
  Age: 15 Year
  Sex: Male

DRUGS (11)
  1. AMLODIPINE BESYLATE [Suspect]
     Active Substance: AMLODIPINE BESYLATE
     Indication: Hypertension
  2. VANCOMYCIN HYDROCHLORIDE [Suspect]
     Active Substance: VANCOMYCIN HYDROCHLORIDE
  3. MYCOPHENOLATE MOFETIL [Suspect]
     Active Substance: MYCOPHENOLATE MOFETIL
  4. RASBURICASE [Suspect]
     Active Substance: RASBURICASE
  5. METHYLPREDNISOLONE [Suspect]
     Active Substance: METHYLPREDNISOLONE
  6. MINOCYCLINE [Suspect]
     Active Substance: MINOCYCLINE HYDROCHLORIDE
  7. AMOXICILLIN [Suspect]
     Active Substance: AMOXICILLIN
  8. CEFTRIAXONE [Suspect]
     Active Substance: CEFTRIAXONE
  9. ISRADIPINE [Suspect]
     Active Substance: ISRADIPINE
  10. PREDNISONE [Suspect]
     Active Substance: PREDNISONE
  11. CLINDAMYCIN [Suspect]
     Active Substance: CLINDAMYCIN

REACTIONS (2)
  - Tubulointerstitial nephritis [Recovering/Resolving]
  - Drug-induced liver injury [Recovering/Resolving]
